FAERS Safety Report 4869261-9 (Version None)
Quarter: 2005Q4

REPORT INFORMATION
  Report Type: 
  Country: None (occurrence: None)
  Receive Date: 20051230
  Receipt Date: 20051222
  Transmission Date: 20060501
  Serious: Yes (Hospitalization, Other)
  Sender: FDA-Public Use
  Company Number: CA-JNJFOC-20051205821

PATIENT
  Sex: Female
  Weight: 46 kg

DRUGS (5)
  1. ITRACONAZOLE [Suspect]
     Indication: FUNGAL INFECTION
     Route: 042
     Dates: start: 20051214, end: 20051220
  2. ITRACONAZOLE [Suspect]
     Route: 042
     Dates: start: 20051214, end: 20051220
  3. TOBRAMYCIN [Suspect]
  4. CEFTAZIDIME [Concomitant]
  5. VANCOMYCIN [Concomitant]

REACTIONS (6)
  - BLOOD ALKALINE PHOSPHATASE INCREASED [None]
  - BLOOD BILIRUBIN INCREASED [None]
  - DRUG TOXICITY [None]
  - MUSCLE SPASMS [None]
  - RENAL FAILURE [None]
  - SEPSIS [None]
